FAERS Safety Report 15625600 (Version 1)
Quarter: 2018Q4

REPORT INFORMATION
  Report Type: Report from Study
  Country: US (occurrence: US)
  Receive Date: 20181116
  Receipt Date: 20181116
  Transmission Date: 20190205
  Serious: Yes (Hospitalization)
  Sender: FDA-Public Use
  Company Number: PHHO2018US012097

PATIENT
  Sex: Female
  Weight: 47.7 kg

DRUGS (2)
  1. GSK1120212 [Suspect]
     Active Substance: TRAMETINIB
     Indication: NEOPLASM
     Dosage: 2 MG, QD
     Route: 048
     Dates: start: 20171005, end: 20180720
  2. DABRAFENIB [Suspect]
     Active Substance: DABRAFENIB
     Indication: NEOPLASM
     Dosage: 150 MG, BID
     Route: 048
     Dates: start: 20171005, end: 20180720

REACTIONS (1)
  - Pneumonia [Recovered/Resolved]

NARRATIVE: CASE EVENT DATE: 20180717
